FAERS Safety Report 8809652 (Version 1)
Quarter: 2012Q4

REPORT INFORMATION
  Report Type: 
  Country: US (occurrence: US)
  Receive Date: 20120926
  Receipt Date: 20120926
  Transmission Date: 20130627
  Serious: Yes (Death, Other)
  Sender: FDA-Public Use
  Company Number: US-ROCHE-1125649

PATIENT
  Sex: Male

DRUGS (5)
  1. AVASTIN [Suspect]
     Indication: RENAL CANCER
     Route: 065
  2. IRESSA [Concomitant]
  3. THALIDOMIDE [Concomitant]
  4. TAXOL [Concomitant]
  5. CARBOPLATIN [Concomitant]

REACTIONS (4)
  - Death [Fatal]
  - Disease progression [Unknown]
  - Performance status decreased [Unknown]
  - Abdominal mass [Unknown]
